FAERS Safety Report 10289787 (Version 1)
Quarter: 2014Q3

REPORT INFORMATION
  Report Type: Spontaneous
  Country: TR (occurrence: None)
  Receive Date: 20140708
  Receipt Date: 20140708
  Transmission Date: 20150326
  Serious: Yes (Hospitalization, Other)
  Sender: FDA-Public Use
  Company Number: 2014PRN00006

PATIENT
  Age: 23 Year
  Sex: Male

DRUGS (1)
  1. LEVETIRACETAM (LEVETIRACETAM) [Suspect]
     Active Substance: LEVETIRACETAM
     Indication: EPILEPSY

REACTIONS (6)
  - Hypokalaemia [None]
  - Hypomagnesaemia [None]
  - Renal tubular disorder [None]
  - Hyperkaliuria [None]
  - Palpitations [None]
  - Fatigue [None]
